FAERS Safety Report 9143847 (Version 1)
Quarter: 2013Q1

REPORT INFORMATION
  Report Type: Spontaneous
  Country: US (occurrence: US)
  Receive Date: 20130306
  Receipt Date: 20130306
  Transmission Date: 20140127
  Serious: Yes (Other)
  Sender: FDA-Public Use
  Company Number: US-ELI_LILLY_AND_COMPANY-US201302004759

PATIENT
  Age: 57 Year
  Sex: Male
  Weight: 92.06 kg

DRUGS (1)
  1. BYDUREON [Suspect]
     Indication: TYPE 2 DIABETES MELLITUS
     Dosage: 2 MG, WEEKLY (1/W)
     Route: 058
     Dates: start: 20130119, end: 20130122

REACTIONS (3)
  - Pharyngeal oedema [Recovered/Resolved]
  - Sensation of foreign body [Recovered/Resolved]
  - Urticaria [Unknown]
